FAERS Safety Report 13183187 (Version 4)
Quarter: 2017Q1

REPORT INFORMATION
  Report Type: Spontaneous
  Country: US (occurrence: US)
  Receive Date: 20170203
  Receipt Date: 20170302
  Transmission Date: 20170428
  Serious: No
  Sender: FDA-Public Use
  Company Number: ALCN2017US001093

PATIENT
  Age: 61 Year
  Sex: Female

DRUGS (1)
  1. SIMBRINZA [Suspect]
     Active Substance: BRIMONIDINE TARTRATE\BRINZOLAMIDE
     Indication: OCULAR HYPERTENSION
     Dosage: 1 GTT, TID
     Route: 047
     Dates: start: 20161102, end: 20170120

REACTIONS (2)
  - Dry mouth [Unknown]
  - Dental caries [Recovered/Resolved with Sequelae]

NARRATIVE: CASE EVENT DATE: 20170118
